FAERS Safety Report 7728958-3 (Version None)
Quarter: 2011Q3

REPORT INFORMATION
  Report Type: 
  Country: None (occurrence: None)
  Receive Date: 20110906
  Receipt Date: 20101111
  Transmission Date: 20111222
  Serious: No
  Sender: FDA-Public Use
  Company Number: US-BAYER-201041079NA

PATIENT
  Sex: Female

DRUGS (1)
  1. MIRENA [Suspect]
     Indication: CONTRACEPTION
     Dosage: 20 ?G/D, CONT
     Route: 015
     Dates: start: 20080912

REACTIONS (7)
  - GENITAL PAIN [None]
  - ABDOMINAL DISCOMFORT [None]
  - GENITAL HAEMORRHAGE [None]
  - WEIGHT INCREASED [None]
  - DEPRESSION [None]
  - MOOD SWINGS [None]
  - FATIGUE [None]
